FAERS Safety Report 9257046 (Version 4)
Quarter: 2014Q4

REPORT INFORMATION
  Report Type: Spontaneous
  Country: US (occurrence: US)
  Receive Date: 20130426
  Receipt Date: 20141007
  Transmission Date: 20150529
  Serious: Yes (Other)
  Sender: FDA-Public Use
  Company Number: US-BAYER-2013-049516

PATIENT
  Age: 33 Year
  Sex: Female
  Weight: 54.42 kg

DRUGS (5)
  1. MIRENA [Suspect]
     Active Substance: LEVONORGESTREL
     Indication: CONTRACEPTION
     Dosage: 20 MCG/24HR, CONT
     Route: 015
     Dates: start: 20071011, end: 20110317
  2. IRON [Concomitant]
     Active Substance: IRON
  3. CIPRO [Concomitant]
     Active Substance: CIPROFLOXACIN HYDROCHLORIDE
  4. HYDROCODONE W/ACETAMINOPHEN [Concomitant]
     Active Substance: ACETAMINOPHEN\HYDROCODONE BITARTRATE
  5. ZYRTEC [Concomitant]
     Active Substance: CETIRIZINE HYDROCHLORIDE

REACTIONS (35)
  - Device dislocation [None]
  - Injury [None]
  - Depression [None]
  - Nervousness [None]
  - Nausea [None]
  - Feeling abnormal [None]
  - Uterine adhesions [None]
  - Device difficult to use [None]
  - Fear [None]
  - Abortion spontaneous [None]
  - Nightmare [None]
  - Device dislocation [None]
  - Drug ineffective [None]
  - Device difficult to use [None]
  - Libido decreased [None]
  - Medical device pain [None]
  - Emotional distress [None]
  - Crying [None]
  - Depressed mood [None]
  - Panic reaction [None]
  - Anger [None]
  - Discomfort [None]
  - Hysterectomy [None]
  - Complication of device removal [None]
  - Pregnancy with contraceptive device [None]
  - Anxiety [None]
  - Confusional state [None]
  - Insomnia [None]
  - Device breakage [None]
  - Complication of device insertion [None]
  - Abdominal pain [None]
  - Decreased interest [None]
  - Mood swings [None]
  - Infertility female [None]
  - Abdominal pain lower [None]

NARRATIVE: CASE EVENT DATE: 2007
